FAERS Safety Report 9491391 (Version 2)
Quarter: 2013Q3

REPORT INFORMATION
  Report Type: Report from Study
  Country: JP (occurrence: JP)
  Receive Date: 20130830
  Receipt Date: 20130830
  Transmission Date: 20140515
  Serious: Yes (Hospitalization)
  Sender: FDA-Public Use
  Company Number: PHHO2010JP01376

PATIENT
  Age: 53 Year
  Sex: Female

DRUGS (20)
  1. ALISKIREN [Suspect]
     Indication: TYPE 2 DIABETES MELLITUS
     Route: 048
     Dates: start: 20090107
  2. ALISKIREN [Suspect]
     Route: 048
     Dates: start: 20090204, end: 20100121
  3. ALISKIREN [Suspect]
     Route: 048
     Dates: start: 20100212, end: 20111227
  4. ALISKIREN [Suspect]
     Route: 048
     Dates: start: 20110624, end: 20120316
  5. BYETTA [Suspect]
     Dates: start: 20110525
  6. PURSENNID [Concomitant]
     Indication: CONSTIPATION
     Dosage: 24 MG, UNK
     Dates: start: 19990527, end: 20120316
  7. NOVORAPID [Concomitant]
     Indication: DIABETES MELLITUS
  8. LEVEMIR [Concomitant]
     Indication: DIABETES MELLITUS
  9. MELBIN [Concomitant]
     Indication: DIABETES MELLITUS
  10. MICARDIS [Concomitant]
     Indication: HYPERTENSION
  11. CARDENALIN [Concomitant]
     Indication: HYPERTENSION
  12. ARTIST [Concomitant]
     Indication: HYPERTENSION
  13. NATRIX [Concomitant]
     Indication: HYPERTENSION
     Dates: start: 20100408
  14. HIRUDOID [Concomitant]
     Indication: RASH
     Dates: start: 20110121
  15. PRIVINA [Concomitant]
     Indication: RHINITIS ALLERGIC
     Dates: start: 20110225
  16. SINGULAIR [Concomitant]
     Indication: RHINITIS ALLERGIC
     Dates: start: 20110325
  17. ZYLORIC [Concomitant]
  18. DICHLOTRIDE [Concomitant]
     Indication: HYPERTENSION
  19. AMLODIPINE [Concomitant]
     Indication: HYPERTENSION
     Dosage: 10 MG, UNK
     Route: 048
     Dates: start: 20091009
  20. ANTEBATE [Concomitant]
     Indication: RASH

REACTIONS (10)
  - Sleep apnoea syndrome [Recovering/Resolving]
  - Diabetes mellitus inadequate control [Recovered/Resolved]
  - Duodenal ulcer [Recovered/Resolved]
  - Gastrointestinal haemorrhage [Recovered/Resolved]
  - Blood pressure decreased [Recovered/Resolved]
  - Anaemia [Recovered/Resolved]
  - Dizziness [Recovered/Resolved]
  - Malaise [Recovered/Resolved]
  - Enteritis infectious [Recovered/Resolved]
  - Helicobacter infection [Unknown]
